FAERS Safety Report 7061500-1 (Version None)
Quarter: 2010Q4

REPORT INFORMATION
  Report Type: 
  Country: None (occurrence: None)
  Receive Date: 20101026
  Receipt Date: 20101021
  Transmission Date: 20110411
  Serious: Yes (Other)
  Sender: FDA-Public Use
  Company Number: JP-PFIZER INC-2010132801

PATIENT
  Age: 80 Year
  Sex: Female

DRUGS (1)
  1. ATARAX [Suspect]
     Indication: RESTLESSNESS
     Dosage: 25 MG, DAILY
     Route: 042

REACTIONS (2)
  - GASTROINTESTINAL HAEMORRHAGE [None]
  - RESPIRATORY DEPRESSION [None]
